FAERS Safety Report 7649350-6 (Version None)
Quarter: 2011Q3

REPORT INFORMATION
  Report Type: 
  Country: None (occurrence: None)
  Receive Date: 20110726
  Receipt Date: 20110719
  Transmission Date: 20111222
  Serious: Yes (Other)
  Sender: FDA-Public Use
  Company Number: 1000022289

PATIENT
  Age: 69 Year
  Sex: Male

DRUGS (4)
  1. DALIRESP [Suspect]
     Indication: CHRONIC OBSTRUCTIVE PULMONARY DISEASE
     Dosage: 500 MCG (500 MCG,1 IN 1 D), ORAL
     Route: 048
     Dates: start: 20110712, end: 20110718
  2. PRAVASTATIN [Concomitant]
  3. COUMADIN (WARFARIN) (WARFARIN) [Concomitant]
  4. DIGOXIN [Concomitant]

REACTIONS (1)
  - TACHYCARDIA [None]
